FAERS Safety Report 24604094 (Version 1)
Quarter: 2024Q4

REPORT INFORMATION
  Report Type: Spontaneous
  Country: US (occurrence: US)
  Receive Date: 20241111
  Receipt Date: 20241111
  Transmission Date: 20250115
  Serious: Yes (Other)
  Sender: CSL BEHRING
  Company Number: US-BEH-2024183635

PATIENT
  Age: 60 Year
  Sex: Female
  Weight: 95.238 kg

DRUGS (2)
  1. HUMATE-P [Suspect]
     Active Substance: HUMAN COAGULATION FACTOR VIII/VON WILLEBRAND FACTOR COMPLEX
     Indication: Von Willebrand^s disease
     Dosage: INFUSE 4800 VWF UNITS (4320-5280) SLOW IV DAILY FOR 3 DAYS (STRENGTH: 2400)
     Route: 042
     Dates: start: 202409
  2. HUMATE-P [Suspect]
     Active Substance: HUMAN COAGULATION FACTOR VIII/VON WILLEBRAND FACTOR COMPLEX
     Dosage: INFUSE 4800 VWF UNITS (4320-5280) SLOW IV DAILY FOR 3 DAYS (STRENGTH: 600)
     Route: 042
     Dates: start: 202409

REACTIONS (2)
  - Knee operation [Unknown]
  - Weight decreased [Unknown]

NARRATIVE: CASE EVENT DATE: 20240924
